FAERS Safety Report 5116588-1 (Version None)
Quarter: 2006Q3

REPORT INFORMATION
  Report Type: 
  Country: None (occurrence: None)
  Receive Date: 20060928
  Receipt Date: 20051121
  Transmission Date: 20061208
  Serious: Yes (Hospitalization)
  Sender: FDA-Public Use
  Company Number: SE-GLAXOSMITHKLINE-B0401539A

PATIENT
  Age: 15 Year
  Sex: Female

DRUGS (1)
  1. ACETAMINOPHEN [Suspect]
     Route: 048
     Dates: start: 20050907, end: 20050912

REACTIONS (8)
  - BLISTER [None]
  - CONJUNCTIVAL DISORDER [None]
  - ORAL MUCOSAL BLISTERING [None]
  - PYREXIA [None]
  - RASH [None]
  - TOXIC EPIDERMAL NECROLYSIS [None]
  - URTICARIA [None]
  - VAGINAL MUCOSAL BLISTERING [None]
